FAERS Safety Report 15249776 (Version 1)
Quarter: 2018Q3

REPORT INFORMATION
  Report Type: Spontaneous
  Country: US (occurrence: US)
  Receive Date: 20180807
  Receipt Date: 20180807
  Transmission Date: 20181010
  Serious: No
  Sender: FDA-Public Use
  Company Number: US-GALEN SPECIALTY PHARMA US LLC-AE-2017-0445

PATIENT
  Age: 81 Year
  Sex: Male

DRUGS (1)
  1. SYNERA [Suspect]
     Active Substance: LIDOCAINE\TETRACAINE
     Indication: ANALGESIC THERAPY
     Dosage: APPLYING SYNERA PATCH FOR 12 HOURS EACH DAY AS NECESSARY.
     Route: 061
     Dates: start: 201707

REACTIONS (2)
  - Product use in unapproved indication [Unknown]
  - Intentional product use issue [Unknown]

NARRATIVE: CASE EVENT DATE: 201707
